FAERS Safety Report 6007415-9 (Version None)
Quarter: 2008Q4

REPORT INFORMATION
  Report Type: 
  Country: None (occurrence: None)
  Receive Date: 20081217
  Receipt Date: 20080414
  Transmission Date: 20090506
  Serious: No
  Sender: FDA-Public Use
  Company Number: US-ASTRAZENECA-2008UW07582

PATIENT
  Age: 75 Year
  Sex: Female
  Weight: 55.8 kg

DRUGS (3)
  1. CRESTOR [Suspect]
     Indication: BLOOD CHOLESTEROL INCREASED
     Route: 048
     Dates: start: 20040101
  2. ULTRAM [Concomitant]
  3. PREDNISONE TAB [Concomitant]

REACTIONS (1)
  - FIBROMYALGIA [None]
